FAERS Safety Report 7040210-0 (Version None)
Quarter: 2010Q3

REPORT INFORMATION
  Report Type: 
  Country: None (occurrence: None)
  Receive Date: 20100929
  Receipt Date: 20100616
  Transmission Date: 20110219
  Serious: Yes (Other)
  Sender: FDA-Public Use
  Company Number: US-WYE-H15327610

PATIENT
  Age: 65 Year
  Sex: Female
  Weight: 73.09 kg

DRUGS (4)
  1. PRISTIQ [Suspect]
     Indication: MAJOR DEPRESSION
     Dosage: 50 MG 1X PER 1 DAY, ORAL
     Route: 048
     Dates: start: 20100108, end: 20100203
  2. LORAZEPAM [Concomitant]
  3. SYNTHROID [Concomitant]
  4. XANAX [Concomitant]

REACTIONS (2)
  - ANXIETY [None]
  - PANIC ATTACK [None]
